FAERS Safety Report 5783043-5 (Version None)
Quarter: 2008Q2

REPORT INFORMATION
  Report Type: 
  Country: None (occurrence: None)
  Receive Date: 20080619
  Receipt Date: 20080602
  Transmission Date: 20081010
  Serious: Yes (Other)
  Sender: FDA-Public Use
  Company Number: CIO08010058

PATIENT
  Age: 67 Year
  Sex: Female
  Weight: 77.1 kg

DRUGS (5)
  1. CREST WHITENING PLUS SCOPE TOOTHPASTE, COOL PEPPERMINT FLAVOR (SODIUM [Suspect]
     Dosage: 1 APPLIC, 1/DAY, INTRAORAL
     Dates: start: 20080401, end: 20080601
  2. PLAVIX [Concomitant]
  3. ZOCOR [Concomitant]
  4. ASPIRIN [Concomitant]
  5. DRUG USED IN DIABETES [Concomitant]

REACTIONS (10)
  - ANAPHYLACTIC REACTION [None]
  - FLUSHING [None]
  - HYPERSENSITIVITY [None]
  - LIP SWELLING [None]
  - OEDEMA PERIPHERAL [None]
  - PRURITUS [None]
  - SKIN BURNING SENSATION [None]
  - SWELLING FACE [None]
  - SWOLLEN TONGUE [None]
  - VOMITING [None]
